FAERS Safety Report 5256182-5 (Version None)
Quarter: 2007Q1

REPORT INFORMATION
  Report Type: 
  Country: None (occurrence: None)
  Receive Date: 20070306
  Receipt Date: 20070228
  Transmission Date: 20070707
  Serious: Yes (Death, Disabling)
  Sender: FDA-Public Use
  Company Number: 2006UW21602

PATIENT
  Age: 15012 Day
  Sex: Male
  Weight: 125 kg

DRUGS (4)
  1. SEROQUEL [Suspect]
     Indication: BIPOLAR DISORDER
     Route: 048
     Dates: start: 20000101, end: 20050722
  2. WELLBUTRIN [Concomitant]
  3. AMITRIPTYLINE HCL [Concomitant]
  4. HYDROXYZINE [Concomitant]

REACTIONS (2)
  - DEATH [None]
  - DIABETES MELLITUS [None]
